FAERS Safety Report 16712680 (Version 2)
Quarter: 2019Q3

REPORT INFORMATION
  Report Type: Spontaneous
  Country: CZ (occurrence: CZ)
  Receive Date: 20190816
  Receipt Date: 20190910
  Transmission Date: 20191004
  Serious: Yes (Hospitalization, Other)
  Sender: FDA-Public Use
  Company Number: PHHY2019CZ189332

PATIENT
  Age: 49 Year
  Sex: Male

DRUGS (2)
  1. METHOTREXATE. [Suspect]
     Active Substance: METHOTREXATE
     Indication: SARCOIDOSIS
     Dosage: 10 MG, QW, SELECTED FOR THE II LINE TREATMENT, WAS ADMINISTERED FOR ONE MONTH
     Route: 065
     Dates: start: 2013, end: 2013
  2. PREDNISONE. [Suspect]
     Active Substance: PREDNISONE
     Indication: SARCOIDOSIS
     Dosage: 30 MG, QD, DAILY FOR THE II LINE TREATMENT, DOSE OF 10 MG PER DAY WAS MAINTAINED
     Route: 065

REACTIONS (5)
  - Hypotension [Recovered/Resolved]
  - Anaemia [Recovered/Resolved]
  - Off label use [Unknown]
  - Circulatory collapse [Recovered/Resolved]
  - Product use in unapproved indication [Unknown]

NARRATIVE: CASE EVENT DATE: 201309
